FAERS Safety Report 5865988-0 (Version None)
Quarter: 2008Q3

REPORT INFORMATION
  Report Type: 
  Country: None (occurrence: None)
  Receive Date: 20080829
  Receipt Date: 20080820
  Transmission Date: 20090109
  Serious: Yes (Congenital Anomaly)
  Sender: FDA-Public Use
  Company Number: US-PFIZER INC-2008050202

PATIENT
  Sex: Female
  Weight: 2.9 kg

DRUGS (2)
  1. ZOLOFT [Suspect]
     Indication: OBSESSIVE-COMPULSIVE DISORDER
     Route: 064
  2. LEXAPRO [Concomitant]
     Route: 064

REACTIONS (6)
  - ATRIAL SEPTAL DEFECT [None]
  - CARDIAC VALVE DISEASE [None]
  - DRUG EXPOSURE DURING PREGNANCY [None]
  - LUNG DISORDER [None]
  - PERSISTENT FOETAL CIRCULATION [None]
  - PLASMINOGEN ACTIVATOR INHIBITOR [None]
